FAERS Safety Report 26082807 (Version 1)
Quarter: 2025Q4

REPORT INFORMATION
  Report Type: Report from Study
  Country: CA (occurrence: CA)
  Receive Date: 20251124
  Receipt Date: 20251124
  Transmission Date: 20260117
  Serious: Yes (Death)
  Sender: IPSEN BIOPHARMACEUTICALS, INC.
  Company Number: CA-IPSEN Group, Research and Development-2025-29036

PATIENT
  Age: 53 Year
  Sex: Female

DRUGS (20)
  1. LANREOTIDE ACETATE [Suspect]
     Active Substance: LANREOTIDE ACETATE
     Indication: Gastroenteropancreatic neuroendocrine tumour disease
     Dosage: DEEP SUBCUTANEOUS
     Route: 058
     Dates: start: 20131113
  2. OCTREOTIDE [Concomitant]
     Active Substance: OCTREOTIDE
     Dosage: 500MCG X4 DAILY PRN
  3. BASAGLAR [Concomitant]
     Active Substance: INSULIN GLARGINE
     Dosage: 40-60 UNITS OD
  4. INSULIN ASPART [Concomitant]
     Active Substance: INSULIN ASPART
  5. DILTIAZEM HYDROCHLORIDE [Concomitant]
     Active Substance: DILTIAZEM HYDROCHLORIDE
     Dosage: 180MG OD
  6. ALLOPURINOL [Concomitant]
     Active Substance: ALLOPURINOL
     Dosage: 200MG BID
  7. Spironolactone/Hydrocholorothiazide [Concomitant]
     Dosage: 25MG/25MG BID
  8. Megastrol/Tamoxifen [Concomitant]
     Dosage: MEGASTROL/TAMOXIFEN CYCLE
  9. Megastrol/Tamoxifen [Concomitant]
     Dosage: MEGASTROL/TAMOXIFEN CYCLE
  10. Eltrombopag/Revolade [Concomitant]
     Dosage: 25MG X3 PER WEEK
  11. LEVOTHYROXINE [Concomitant]
     Active Substance: LEVOTHYROXINE
     Dosage: 0.2MG OD
  12. SYNTHROID [Concomitant]
     Active Substance: LEVOTHYROXINE SODIUM
     Dosage: 0175MG OD
  13. CUVITRU [Concomitant]
     Active Substance: HUMAN IMMUNOGLOBULIN G
     Dosage: CUVITRU 56G TWICE WEEKLY
  14. MAGNESIUM OXIDE [Concomitant]
     Active Substance: MAGNESIUM OXIDE
     Dosage: MAGNESIUM OXIDE 500MG OD
  15. VITAMIN D [Concomitant]
     Active Substance: VITAMIN D NOS
     Dosage: VITAMIN D 1000IU OD
  16. SYMBICORT [Concomitant]
     Active Substance: BUDESONIDE\FORMOTEROL FUMARATE DIHYDRATE
     Dosage: SYMBICORT 2 PUFFS OD
  17. Benadryl qhs [Concomitant]
     Dosage: BENADRYL QHS PRN
  18. Hydrocodone bitar [Concomitant]
     Dosage: HYDROCODONE BITAR PRN
  19. GRAVOL [Concomitant]
     Active Substance: DIMENHYDRINATE
     Dosage: GRAVOL PRN
  20. Eltrombopag/Revolade [Concomitant]
     Dosage: 25MG X3 PER WEEK,

REACTIONS (2)
  - Death [Fatal]
  - Off label use [Unknown]

NARRATIVE: CASE EVENT DATE: 20131113
